FAERS Safety Report 19940531 (Version 1)
Quarter: 2021Q4

REPORT INFORMATION
  Report Type: Spontaneous
  Country: US (occurrence: US)
  Receive Date: 20211011
  Receipt Date: 20211011
  Transmission Date: 20220303
  Serious: No
  Sender: FDA-Public Use
  Company Number: US-PERRIGO-20US017910

PATIENT
  Age: 64 Year
  Sex: Female
  Weight: 97.05 kg

DRUGS (7)
  1. IMIQUIMOD [Suspect]
     Active Substance: IMIQUIMOD
     Indication: Papilloma viral infection
     Dosage: 12.5 MG, QOD
     Route: 067
     Dates: start: 20201122, end: 20201206
  2. METOPROLOL [Concomitant]
     Active Substance: METOPROLOL
     Indication: Tachycardia
     Dosage: UNKNOWN, UNKNOWN
     Route: 065
     Dates: start: 202009
  3. RANOLAZINE [Concomitant]
     Active Substance: RANOLAZINE
     Indication: Tachycardia
     Dosage: UNKNOWN, UNKNOWN
     Route: 065
     Dates: start: 202009
  4. OMEPRAZOLE [Concomitant]
     Active Substance: OMEPRAZOLE
     Indication: Gastrooesophageal reflux disease
     Dosage: UNKNOWN, UNKNOWN
     Route: 065
     Dates: start: 2012
  5. BRIOBACEPT [Concomitant]
     Active Substance: BRIOBACEPT
     Indication: Asthma
     Dosage: UNKNOWN, UNKNOWN
     Route: 065
  6. PROAIR HFA [Concomitant]
     Active Substance: ALBUTEROL SULFATE
     Indication: Asthma
     Dosage: PRN
     Route: 055
  7. EPINEPHRINE [Concomitant]
     Active Substance: EPINEPHRINE
     Indication: Asthma
     Dosage: PRN
     Route: 065

REACTIONS (6)
  - Vertigo [Recovering/Resolving]
  - Vomiting [Recovering/Resolving]
  - Dizziness [Recovering/Resolving]
  - Hypersensitivity [Recovering/Resolving]
  - Incorrect route of product administration [Recovered/Resolved]
  - Off label use [Recovered/Resolved]

NARRATIVE: CASE EVENT DATE: 20201122
